FAERS Safety Report 12216908 (Version 1)
Quarter: 2016Q1

REPORT INFORMATION
  Report Type: Spontaneous
  Country: None (occurrence: None)
  Receive Date: 20160328
  Receipt Date: 20160328
  Transmission Date: 20160526
  Serious: Yes (Disabling)
  Sender: FDA-Public Use
  Company Number: None

PATIENT
  Age: 30 Year
  Sex: Female
  Weight: 67.13 kg

DRUGS (8)
  1. MAGNESIUM [Concomitant]
     Active Substance: MAGNESIUM
  2. SOLENIUM [Concomitant]
  3. KLONOPIN [Suspect]
     Active Substance: CLONAZEPAM
     Indication: RESTLESS LEGS SYNDROME
     Route: 048
     Dates: start: 20120523
  4. MULTIVITAMIN [Concomitant]
     Active Substance: VITAMINS
  5. ALBUTEROL. [Concomitant]
     Active Substance: ALBUTEROL
  6. IRON [Concomitant]
     Active Substance: IRON
  7. KLONOPIN [Concomitant]
     Active Substance: CLONAZEPAM
  8. POTASSIUM [Concomitant]
     Active Substance: POTASSIUM

REACTIONS (10)
  - Injury [None]
  - Feeling abnormal [None]
  - Hypoaesthesia [None]
  - Muscle spasms [None]
  - Hallucination, auditory [None]
  - Vomiting [None]
  - Insomnia [None]
  - Fall [None]
  - Tremor [None]
  - Withdrawal syndrome [None]

NARRATIVE: CASE EVENT DATE: 20150514
